FAERS Safety Report 24189518 (Version 1)
Quarter: 2024Q3

REPORT INFORMATION
  Report Type: Spontaneous
  Country: FR (occurrence: FR)
  Receive Date: 20240808
  Receipt Date: 20240808
  Transmission Date: 20241016
  Serious: Yes (Other)
  Sender: PFIZER
  Company Number: None

PATIENT
  Age: 45 Year
  Sex: Male

DRUGS (4)
  1. LEVETIRACETAM [Suspect]
     Active Substance: LEVETIRACETAM
     Indication: Brain abscess
     Dosage: 500 MG EVERY 12H
     Route: 048
     Dates: start: 20240613
  2. PREDNISONE [Suspect]
     Active Substance: PREDNISONE
     Indication: Brain abscess
     Dosage: 20 MG, 1X/DAY
     Route: 048
     Dates: start: 20240613
  3. CEFTRIAXONE SODIUM [Suspect]
     Active Substance: CEFTRIAXONE SODIUM
     Indication: Brain abscess
     Dosage: 2 G, FREQ:12 H
     Route: 042
     Dates: start: 20240617
  4. METRONIDAZOLE [Suspect]
     Active Substance: METRONIDAZOLE
     Indication: Brain abscess
     Dosage: 500 MG, FREQ:8 H
     Route: 048
     Dates: start: 20240613

REACTIONS (4)
  - Thrombocytopenia [Unknown]
  - Neutropenia [Unknown]
  - Vision blurred [Unknown]
  - Off label use [Unknown]

NARRATIVE: CASE EVENT DATE: 20240701
